FAERS Safety Report 12567362 (Version 2)
Quarter: 2016Q3

REPORT INFORMATION
  Report Type: Spontaneous
  Country: US (occurrence: US)
  Receive Date: 20160718
  Receipt Date: 20160718
  Transmission Date: 20161109
  Serious: No
  Sender: FDA-Public Use
  Company Number: US-ASTELLAS-2016US020701

PATIENT
  Sex: Female

DRUGS (4)
  1. MYRBETRIQ [Suspect]
     Active Substance: MIRABEGRON
     Route: 048
  2. MYRBETRIQ [Suspect]
     Active Substance: MIRABEGRON
     Indication: HYPERTONIC BLADDER
     Route: 048
  3. MYRBETRIQ [Suspect]
     Active Substance: MIRABEGRON
     Indication: HYPERTONIC BLADDER
     Route: 048
     Dates: start: 201604
  4. MYRBETRIQ [Suspect]
     Active Substance: MIRABEGRON
     Route: 048
     Dates: end: 2015

REACTIONS (2)
  - Blood pressure increased [Recovered/Resolved]
  - Drug effect incomplete [Unknown]
